FAERS Safety Report 18087070 (Version 1)
Quarter: 2020Q3

REPORT INFORMATION
  Report Type: Spontaneous
  Country: US (occurrence: US)
  Receive Date: 20200729
  Receipt Date: 20200729
  Transmission Date: 20201103
  Serious: Yes (Other)
  Sender: FDA-Public Use
  Company Number: US-PFIZER INC-2020287416

PATIENT
  Age: 89 Year
  Sex: Male

DRUGS (1)
  1. TAFAMIDIS [Suspect]
     Active Substance: TAFAMIDIS MEGLUMINE
     Indication: AMYLOIDOSIS
     Dosage: 61 MG
     Dates: start: 20190730

REACTIONS (5)
  - Pelvic fracture [Unknown]
  - Spinal fracture [Unknown]
  - Spinal stenosis [Unknown]
  - Osteoarthritis [Unknown]
  - Osteoporosis [Unknown]
